FAERS Safety Report 7176568-1 (Version None)
Quarter: 2010Q4

REPORT INFORMATION
  Report Type: 
  Country: None (occurrence: None)
  Receive Date: 20101215
  Receipt Date: 20101215
  Transmission Date: 20110411
  Serious: Yes (Life-Threatening, Hospitalization, Disabling)
  Sender: FDA-Public Use
  Company Number: None

PATIENT
  Age: 20 Year
  Sex: Male
  Weight: 81 kg

DRUGS (2)
  1. DALTEPARIN SODIUM [Suspect]
     Indication: DEEP VEIN THROMBOSIS
     Dosage: 5000 IU DAILY SQ
     Route: 058
     Dates: start: 20101119, end: 20101127
  2. DALTEPARIN SODIUM [Suspect]
     Indication: THROMBOSIS PROPHYLAXIS
     Dosage: 5000 IU DAILY SQ
     Route: 058
     Dates: start: 20101119, end: 20101127

REACTIONS (2)
  - DEEP VEIN THROMBOSIS [None]
  - PRODUCT QUALITY ISSUE [None]
